FAERS Safety Report 10958150 (Version 2)
Quarter: 2015Q2

REPORT INFORMATION
  Report Type: Spontaneous
  Country: DE (occurrence: DE)
  Receive Date: 20150326
  Receipt Date: 20150420
  Transmission Date: 20150821
  Serious: Yes (Life-Threatening, Hospitalization)
  Sender: FDA-Public Use
  Company Number: DE-SA-2015SA038287

PATIENT
  Age: 37 Year
  Sex: Female
  Weight: 56 kg

DRUGS (1)
  1. CLEXANE [Suspect]
     Active Substance: ENOXAPARIN SODIUM
     Indication: THROMBOSIS PROPHYLAXIS
     Dosage: STRENGHT: 20 MG/0.2 ML
     Route: 058
     Dates: start: 20150313

REACTIONS (5)
  - Swelling [Unknown]
  - Scar [Unknown]
  - Product quality issue [Unknown]
  - Needle issue [Unknown]
  - Pain [Unknown]

NARRATIVE: CASE EVENT DATE: 2015
